FAERS Safety Report 24652186 (Version 6)
Quarter: 2025Q3

REPORT INFORMATION
  Report Type: Spontaneous
  Country: US (occurrence: US)
  Receive Date: 20241122
  Receipt Date: 20250923
  Transmission Date: 20251020
  Serious: No
  Sender: PFIZER
  Company Number: US-PFIZER INC-202400302256

PATIENT
  Age: 16 Year
  Sex: Male
  Weight: 63.492 kg

DRUGS (2)
  1. GENOTROPIN [Suspect]
     Active Substance: SOMATROPIN
     Indication: Growth hormone deficiency
     Dosage: 1.9 ONE DAY THEN 1.8 THE OTHER DAY
  2. GENOTROPIN [Suspect]
     Active Substance: SOMATROPIN
     Dosage: 1.9 ONE DAY THEN 1.8 THE OTHER DAY

REACTIONS (3)
  - Product prescribing error [Unknown]
  - Device leakage [Unknown]
  - Poor quality device used [Unknown]
